FAERS Safety Report 8481668-X (Version None)
Quarter: 2012Q3

REPORT INFORMATION
  Report Type: 
  Country: None (occurrence: None)
  Receive Date: 20120702
  Receipt Date: 20120622
  Transmission Date: 20120928
  Serious: Yes (Other)
  Sender: FDA-Public Use
  Company Number: HR-ASTRAZENECA-2012SE43268

PATIENT
  Age: 42 Year
  Sex: Male

DRUGS (4)
  1. DEXAMETHASONE [Suspect]
     Indication: ANALGESIC THERAPY
     Dosage: 8 MG
     Route: 042
  2. LIDOCAINE [Suspect]
     Dosage: 1% 5ML/HOUR
     Route: 053
  3. CHIROCAINE [Suspect]
     Indication: ANALGESIC THERAPY
     Route: 042
  4. LIDOCAINE [Suspect]
     Indication: ANALGESIC THERAPY
     Dosage: 1% 10ML/HOUR
     Route: 053

REACTIONS (1)
  - DYSPNOEA [None]
